FAERS Safety Report 15689332 (Version 2)
Quarter: 2018Q4

REPORT INFORMATION
  Report Type: Spontaneous
  Country: FR (occurrence: FR)
  Receive Date: 20181205
  Receipt Date: 20181206
  Transmission Date: 20190205
  Serious: Yes (Hospitalization, Other)
  Sender: FDA-Public Use
  Company Number: PHHY2018FR172169

PATIENT
  Age: 56 Year
  Sex: Male

DRUGS (2)
  1. AMLOR [Concomitant]
     Active Substance: AMLODIPINE BESYLATE
     Indication: PRODUCT USED FOR UNKNOWN INDICATION
     Route: 065
  2. VOTRIENT [Suspect]
     Active Substance: PAZOPANIB HYDROCHLORIDE
     Indication: FIBROMA
     Dosage: 600 MG, QD
     Route: 065
     Dates: start: 20181110, end: 20181120

REACTIONS (12)
  - Rectal haemorrhage [Unknown]
  - Cheilosis [Unknown]
  - Blood thyroid stimulating hormone increased [Unknown]
  - Drug intolerance [Unknown]
  - Headache [Unknown]
  - Tachycardia [Unknown]
  - Haemorrhoids [Unknown]
  - Rash [Not Recovered/Not Resolved]
  - Thrombocytopenia [Unknown]
  - Polycythaemia [Unknown]
  - Sjogren^s syndrome [Unknown]
  - Hypertension [Unknown]

NARRATIVE: CASE EVENT DATE: 20181123
